FAERS Safety Report 20161316 (Version 3)
Quarter: 2023Q2

REPORT INFORMATION
  Report Type: Spontaneous
  Country: US (occurrence: US)
  Receive Date: 20211208
  Receipt Date: 20230626
  Transmission Date: 20230722
  Serious: No
  Sender: FDA-Public Use
  Company Number: US-GILEAD-2021-0557521

PATIENT
  Sex: Male
  Weight: 68.038 kg

DRUGS (39)
  1. VIREAD [Suspect]
     Active Substance: TENOFOVIR DISOPROXIL FUMARATE
     Indication: HIV infection
     Dosage: UNK
     Route: 048
     Dates: start: 2008
  2. TRUVADA [Suspect]
     Active Substance: EMTRICITABINE\TENOFOVIR DISOPROXIL FUMARATE
     Indication: HIV infection
     Dosage: UNK
     Route: 048
     Dates: start: 2008
  3. TRUVADA [Suspect]
     Active Substance: EMTRICITABINE\TENOFOVIR DISOPROXIL FUMARATE
     Dosage: UNK
     Route: 048
     Dates: start: 2004, end: 2017
  4. TRUVADA [Suspect]
     Active Substance: EMTRICITABINE\TENOFOVIR DISOPROXIL FUMARATE
     Dosage: UNK
     Route: 048
     Dates: start: 200512, end: 2010
  5. TRUVADA [Suspect]
     Active Substance: EMTRICITABINE\TENOFOVIR DISOPROXIL FUMARATE
     Dosage: UNK
     Route: 048
     Dates: start: 201203, end: 201304
  6. ATRIPLA [Suspect]
     Active Substance: EFAVIRENZ\EMTRICITABINE\TENOFOVIR DISOPROXIL FUMARATE
     Indication: HIV infection
     Dosage: UNK
     Route: 065
     Dates: start: 2006, end: 2006
  7. ODEFSEY [Concomitant]
     Active Substance: EMTRICITABINE\RILPIVIRINE HYDROCHLORIDE\TENOFOVIR ALAFENAMIDE FUMARATE
  8. DESCOVY [Concomitant]
     Active Substance: EMTRICITABINE\TENOFOVIR ALAFENAMIDE FUMARATE
  9. VITEKTA [Concomitant]
     Active Substance: ELVITEGRAVIR
  10. EDURANT [Concomitant]
     Active Substance: RILPIVIRINE HYDROCHLORIDE
  11. EPZICOM [Concomitant]
     Active Substance: ABACAVIR SULFATE\LAMIVUDINE
  12. INTELENCE [Concomitant]
     Active Substance: ETRAVIRINE
  13. ISENTRESS [Concomitant]
     Active Substance: RALTEGRAVIR POTASSIUM
  14. JULUCA [Concomitant]
     Active Substance: DOLUTEGRAVIR SODIUM\RILPIVIRINE HYDROCHLORIDE
  15. NORVIR [Concomitant]
     Active Substance: RITONAVIR
  16. PREZCOBIX [Concomitant]
     Active Substance: COBICISTAT\DARUNAVIR ETHANOLATE
  17. PREZISTA [Concomitant]
     Active Substance: DARUNAVIR ETHANOLATE
  18. TIVICAY [Concomitant]
     Active Substance: DOLUTEGRAVIR SODIUM
  19. VIRAMUNE XR [Concomitant]
     Active Substance: NEVIRAPINE
  20. ALPRAZOLAM [Concomitant]
     Active Substance: ALPRAZOLAM
  21. ANADROL [Concomitant]
     Active Substance: OXYMETHOLONE
  22. ASPIRIN [Concomitant]
     Active Substance: ASPIRIN
  23. ATORVASTATIN [Concomitant]
     Active Substance: ATORVASTATIN
  24. BETA CAROTENE [Concomitant]
     Active Substance: BETA CAROTENE
  25. CYANOCOBALAMIN [Concomitant]
     Active Substance: CYANOCOBALAMIN
  26. DOCUSATE SODIUM [Concomitant]
     Active Substance: DOCUSATE SODIUM
  27. HYDROCHLOROTHIAZIDE [Concomitant]
     Active Substance: HYDROCHLOROTHIAZIDE
  28. LISINOPRIL [Concomitant]
     Active Substance: LISINOPRIL
  29. LORATADINE [Concomitant]
     Active Substance: LORATADINE
  30. VITAMINS [Concomitant]
     Active Substance: VITAMINS
  31. OXYCODONE AND ACETAMINOPHEN [Concomitant]
     Active Substance: ACETAMINOPHEN\OXYCODONE HYDROCHLORIDE
  32. RANITIDINE [Concomitant]
     Active Substance: RANITIDINE
  33. SEROQUEL [Concomitant]
     Active Substance: QUETIAPINE FUMARATE
  34. SEROSTIM [Concomitant]
     Active Substance: SOMATROPIN
  35. TESTOSTERONE [Concomitant]
     Active Substance: TESTOSTERONE
  36. VIRAMUNE [Concomitant]
     Active Substance: NEVIRAPINE
  37. ZIAGEN [Concomitant]
     Active Substance: ABACAVIR SULFATE
  38. ZERIT [Concomitant]
     Active Substance: STAVUDINE
  39. KALETRA [Concomitant]
     Active Substance: LOPINAVIR\RITONAVIR

REACTIONS (11)
  - Bone demineralisation [Unknown]
  - Bone density decreased [Unknown]
  - Hand fracture [Unknown]
  - Pain [Not Recovered/Not Resolved]
  - Emotional distress [Not Recovered/Not Resolved]
  - Anxiety [Not Recovered/Not Resolved]
  - Anhedonia [Not Recovered/Not Resolved]
  - Osteopenia [Not Recovered/Not Resolved]
  - Neck pain [Not Recovered/Not Resolved]
  - Mobility decreased [Not Recovered/Not Resolved]
  - Depression [Not Recovered/Not Resolved]

NARRATIVE: CASE EVENT DATE: 20200101
